FAERS Safety Report 15616194 (Version 1)
Quarter: 2018Q4

REPORT INFORMATION
  Report Type: Spontaneous
  Country: US (occurrence: US)
  Receive Date: 20181114
  Receipt Date: 20181114
  Transmission Date: 20190205
  Serious: Yes (Other)
  Sender: FDA-Public Use
  Company Number: US-INSYS THERAPEUTICS, INC-INS201811-000417

PATIENT
  Sex: Female

DRUGS (5)
  1. SUBSYS [Suspect]
     Active Substance: FENTANYL
     Route: 060
  2. SUBSYS [Suspect]
     Active Substance: FENTANYL
     Route: 060
  3. SUBSYS [Suspect]
     Active Substance: FENTANYL
     Route: 060
  4. SUBSYS [Suspect]
     Active Substance: FENTANYL
     Route: 060
     Dates: end: 201701
  5. SUBSYS [Suspect]
     Active Substance: FENTANYL
     Indication: PAIN
     Route: 060
     Dates: start: 201304

REACTIONS (3)
  - Drug dependence [Unknown]
  - Injury [Unknown]
  - Emotional distress [Unknown]
